FAERS Safety Report 5067991-X (Version None)
Quarter: 2006Q3

REPORT INFORMATION
  Report Type: 
  Country: None (occurrence: None)
  Receive Date: 20060717
  Receipt Date: 20051129
  Transmission Date: 20061208
  Serious: Yes (Other)
  Sender: FDA-Public Use
  Company Number: 2005-11-1793

PATIENT

DRUGS (2)
  1. INTEGRILIN [Suspect]
     Indication: DEEP VEIN THROMBOSIS
     Dosage: INTRAVENOUS
     Route: 042
  2. HEPARIN [Suspect]

REACTIONS (1)
  - THROMBOCYTOPENIA [None]
